FAERS Safety Report 13123520 (Version 1)
Quarter: 2017Q1

REPORT INFORMATION
  Report Type: Report from Study
  Country: US (occurrence: US)
  Receive Date: 20170117
  Receipt Date: 20170117
  Transmission Date: 20170428
  Serious: Yes (Other)
  Sender: FDA-Public Use
  Company Number: US-GILEAD-2017-0253559

PATIENT
  Age: 70 Year
  Sex: Male

DRUGS (1)
  1. RANOLAZINE [Suspect]
     Active Substance: RANOLAZINE
     Indication: ANGINA PECTORIS
     Dosage: 500 MG, UNK
     Route: 048

REACTIONS (5)
  - Implantable defibrillator insertion [Not Recovered/Not Resolved]
  - Cataract [Not Recovered/Not Resolved]
  - Hip surgery [Unknown]
  - Visual acuity reduced [Not Recovered/Not Resolved]
  - Constipation [Not Recovered/Not Resolved]
